FAERS Safety Report 7950221-6 (Version None)
Quarter: 2011Q4

REPORT INFORMATION
  Report Type: 
  Country: None (occurrence: None)
  Receive Date: 20111130
  Receipt Date: 20111115
  Transmission Date: 20120403
  Serious: Yes (Hospitalization)
  Sender: FDA-Public Use
  Company Number: DE-COVIDIEN/TYCO HEALTHCARE/MALLINCKRODT-T201102287

PATIENT
  Sex: Male
  Weight: 68 kg

DRUGS (5)
  1. LYRICA [Concomitant]
     Indication: NEURALGIA
     Dosage: 300 MG, UNK
     Route: 048
     Dates: start: 20110628
  2. CITALOPRAM HYDROBROMIDE [Concomitant]
     Dosage: 20 MG, UNK
     Route: 048
     Dates: start: 20110130
  3. EXALGO [Suspect]
     Indication: PAIN
     Dosage: 16 MG, BID
     Route: 048
  4. EXALGO [Suspect]
     Dosage: DOSE SLOWLY INCREASED
  5. LAMOTRIGINE [Concomitant]
     Indication: EPILEPSY
     Dosage: 100 MG, UNK
     Route: 048
     Dates: start: 20110130

REACTIONS (6)
  - GENERAL PHYSICAL HEALTH DETERIORATION [None]
  - DEPRESSED LEVEL OF CONSCIOUSNESS [None]
  - FAECAL INCONTINENCE [None]
  - STARING [None]
  - BRONCHIAL DISORDER [None]
  - URINARY INCONTINENCE [None]
